FAERS Safety Report 16561233 (Version 1)
Quarter: 2019Q3

REPORT INFORMATION
  Report Type: Spontaneous
  Country: LT (occurrence: LT)
  Receive Date: 20190711
  Receipt Date: 20190711
  Transmission Date: 20191004
  Serious: Yes (Hospitalization, Other)
  Sender: FDA-Public Use
  Company Number: LT-MYLANLABS-2019M1063812

PATIENT
  Age: 27 Year
  Sex: Female

DRUGS (1)
  1. METOPROLOL. [Suspect]
     Active Substance: METOPROLOL
     Indication: PRODUCT USED FOR UNKNOWN INDICATION
     Dosage: 25 MILLIGRAM

REACTIONS (6)
  - Heart rate decreased [Recovering/Resolving]
  - Intentional overdose [Recovering/Resolving]
  - Overdose [Unknown]
  - Blood pressure decreased [Recovering/Resolving]
  - Off label use [Unknown]
  - Suicide attempt [Unknown]
